FAERS Safety Report 8439312-3 (Version None)
Quarter: 2012Q2

REPORT INFORMATION
  Report Type: 
  Country: None (occurrence: None)
  Receive Date: 20120615
  Receipt Date: 20120613
  Transmission Date: 20120825
  Serious: Yes (Hospitalization)
  Sender: FDA-Public Use
  Company Number: PHHY2011AU64275

PATIENT
  Sex: Female

DRUGS (7)
  1. ZOLEDRONOC ACID [Suspect]
     Indication: OSTEOPOROSIS
     Route: 042
  2. TRITACE [Concomitant]
     Indication: HYPERTENSION
     Dosage: 2.5 MG, DAILY
  3. SIMVASTATIN [Concomitant]
     Indication: HYPERCHOLESTEROLAEMIA
  4. PREDNISOLONE [Concomitant]
     Indication: MYALGIA
     Dosage: 5 MG, DAILY
     Route: 048
  5. BICOR [Concomitant]
     Indication: CARDIOMYOPATHY
     Dosage: 10 MG, DAILY
     Route: 048
  6. PLAVIX [Concomitant]
     Indication: ANTICOAGULANT THERAPY
     Dosage: 75 MG, DAILY
  7. NEXIUM [Concomitant]
     Indication: GASTROOESOPHAGEAL REFLUX DISEASE
     Dosage: 40 MG, DAILY
     Route: 048

REACTIONS (6)
  - DRUG INEFFECTIVE [None]
  - ACETABULUM FRACTURE [None]
  - PELVIC FRACTURE [None]
  - BONE DENSITY ABNORMAL [None]
  - FALL [None]
  - RIB FRACTURE [None]
